FAERS Safety Report 9252794 (Version 2)
Quarter: 2013Q2

REPORT INFORMATION
  Report Type: Spontaneous
  Country: US (occurrence: US)
  Receive Date: 20130424
  Receipt Date: 20130624
  Transmission Date: 20140414
  Serious: No
  Sender: FDA-Public Use
  Company Number: US-TEVA-400306USA

PATIENT
  Sex: 0

DRUGS (2)
  1. NUVIGIL [Suspect]
     Indication: FATIGUE
  2. NUVIGIL [Suspect]
     Indication: SOMNOLENCE

REACTIONS (4)
  - Drug ineffective [Unknown]
  - Drug effect decreased [Unknown]
  - Feeling abnormal [Unknown]
  - Off label use [Unknown]
